FAERS Safety Report 8988104 (Version 1)
Quarter: 2012Q4

REPORT INFORMATION
  Report Type: Report from Study
  Country: CA (occurrence: CA)
  Receive Date: 20121227
  Receipt Date: 20121227
  Transmission Date: 20130627
  Serious: Yes (Hospitalization)
  Sender: FDA-Public Use
  Company Number: CA-ROCHE-1171037

PATIENT
  Sex: Female
  Weight: 93 kg

DRUGS (7)
  1. RITUXIMAB [Suspect]
     Indication: RHEUMATOID ARTHRITIS
     Dosage: day 1 and 15
     Route: 042
     Dates: start: 20121003, end: 20121003
  2. CELEBREX [Concomitant]
     Route: 065
  3. ARAVA [Concomitant]
  4. PREDNISONE [Concomitant]
  5. DIPHENHYDRAMINE HCL [Concomitant]
     Route: 048
     Dates: start: 20121003, end: 20121003
  6. ACETAMINOPHEN [Concomitant]
     Route: 048
     Dates: start: 20121003, end: 20121003
  7. METHYLPREDNISOLONE [Concomitant]
     Route: 048
     Dates: start: 20121003, end: 20121003

REACTIONS (9)
  - Immobile [Recovered/Resolved]
  - Rheumatoid arthritis [Recovered/Resolved]
  - Hypotension [Unknown]
  - White blood cell count decreased [Unknown]
  - Nasopharyngitis [Recovered/Resolved]
  - Myalgia [Recovered/Resolved]
  - Dizziness [Recovered/Resolved]
  - Musculoskeletal stiffness [Recovered/Resolved]
  - Infection [Not Recovered/Not Resolved]
